FAERS Safety Report 18781575 (Version 1)
Quarter: 2021Q1

REPORT INFORMATION
  Report Type: Report from Study
  Country: BR (occurrence: BR)
  Receive Date: 20210125
  Receipt Date: 20210125
  Transmission Date: 20210419
  Serious: Yes (Hospitalization)
  Sender: FDA-Public Use
  Company Number: NVSC2021BR015156

PATIENT
  Age: 54 Year
  Sex: Female

DRUGS (5)
  1. PIQRAY [Suspect]
     Active Substance: ALPELISIB
     Indication: BREAST CANCER
     Dosage: 300 MG, QD (200+50+50MG, 1ST BOX)
     Route: 065
     Dates: start: 20201224, end: 20210111
  2. PIQRAY [Suspect]
     Active Substance: ALPELISIB
     Dosage: 250 MG, QD (200+50MG, 2ND BOX)
     Route: 065
     Dates: start: 20210111
  3. ZOMETA [Suspect]
     Active Substance: ZOLEDRONIC ACID
     Indication: METASTASES TO BONE
     Dosage: UNK (EVERY 56 DAYS)
     Route: 065
     Dates: start: 2016
  4. FULVESTRANT. [Concomitant]
     Active Substance: FULVESTRANT
     Indication: PRODUCT USED FOR UNKNOWN INDICATION
     Dosage: UNK UNK, QMO (SYRINGE, DID NOT KNOW HOW TO INFORM THE LABORATORY)
     Route: 065
     Dates: start: 2016
  5. FASLODEX [Concomitant]
     Active Substance: FULVESTRANT
     Indication: PRODUCT USED FOR UNKNOWN INDICATION
     Dosage: UNK (SYRING)
     Route: 065
     Dates: start: 202005

REACTIONS (1)
  - Hyperglycaemia [Recovering/Resolving]

NARRATIVE: CASE EVENT DATE: 20210104
